FAERS Safety Report 6754633-8 (Version None)
Quarter: 2010Q2

REPORT INFORMATION
  Report Type: 
  Country: None (occurrence: None)
  Receive Date: 20100603
  Receipt Date: 20100601
  Transmission Date: 20101027
  Serious: Yes (Life-Threatening)
  Sender: FDA-Public Use
  Company Number: DE-ROXANE LABORATORIES, INC.-2010-RO-00653RO

PATIENT
  Age: 66 Year

DRUGS (2)
  1. METHOTREXATE [Suspect]
     Indication: ARTHROPATHY
  2. STEROIDS [Suspect]
     Indication: ARTHROPATHY

REACTIONS (1)
  - MUCORMYCOSIS [None]
